FAERS Safety Report 9892730 (Version 3)
Quarter: 2014Q4

REPORT INFORMATION
  Report Type: Spontaneous
  Country: US (occurrence: US)
  Receive Date: 20140212
  Receipt Date: 20141020
  Transmission Date: 20150529
  Serious: Yes (Hospitalization)
  Sender: FDA-Public Use
  Company Number: US-009507513-1402USA005034

PATIENT
  Sex: Female

DRUGS (1)
  1. NUVARING [Suspect]
     Active Substance: ETHINYL ESTRADIOL\ETONOGESTREL
     Indication: CONTRACEPTION
     Route: 067

REACTIONS (8)
  - Ankle operation [Unknown]
  - Foot operation [Unknown]
  - Essential hypertension [Unknown]
  - Asthma [Unknown]
  - Fibula fracture [Unknown]
  - Deep vein thrombosis [Unknown]
  - Headache [Unknown]
  - Bunion operation [Unknown]

NARRATIVE: CASE EVENT DATE: 20121029
